FAERS Safety Report 26037009 (Version 2)
Quarter: 2025Q4

REPORT INFORMATION
  Report Type: Report from Study
  Country: US (occurrence: US)
  Receive Date: 20251112
  Receipt Date: 20251127
  Transmission Date: 20260118
  Serious: No
  Sender: ABBVIE
  Company Number: US-ABBVIE-6540812

PATIENT
  Age: 67 Year
  Sex: Female
  Weight: 107 kg

DRUGS (3)
  1. SKYRIZI [Suspect]
     Active Substance: RISANKIZUMAB-RZAA
     Indication: Crohn^s disease
     Dosage: FORM STRENGTH 360 MILLIGRAM
     Route: 058
     Dates: start: 202402, end: 202503
  2. SKYRIZI [Suspect]
     Active Substance: RISANKIZUMAB-RZAA
     Dosage: FORM STRENGTH 360 MILLIGRAM
     Route: 058
     Dates: start: 202503
  3. RISANKIZUMAB [Suspect]
     Active Substance: RISANKIZUMAB
     Indication: Crohn^s disease
     Dosage: FORM STRENGTH 600 MILLIGRAM
     Route: 042
     Dates: start: 202312

REACTIONS (5)
  - Stenosis [Not Recovered/Not Resolved]
  - Gastrointestinal inflammation [Unknown]
  - Computerised tomogram abnormal [Unknown]
  - Enteritis [Not Recovered/Not Resolved]
  - Crohn^s disease [Not Recovered/Not Resolved]

NARRATIVE: CASE EVENT DATE: 20250101
